FAERS Safety Report 10168142 (Version 2)
Quarter: 2014Q2

REPORT INFORMATION
  Report Type: Spontaneous
  Country: US (occurrence: US)
  Receive Date: 20140512
  Receipt Date: 20140604
  Transmission Date: 20141212
  Serious: Yes (Hospitalization)
  Sender: FDA-Public Use
  Company Number: US-BRISTOL-MYERS SQUIBB COMPANY-20714119

PATIENT
  Age: 66 Year
  Sex: Male

DRUGS (3)
  1. BYDUREON [Suspect]
     Indication: TYPE 2 DIABETES MELLITUS
  2. ACTOS [Concomitant]
  3. METFORMIN [Concomitant]

REACTIONS (1)
  - Biliary dyskinesia [Unknown]
